FAERS Safety Report 9540248 (Version 1)
Quarter: 2013Q3

REPORT INFORMATION
  Report Type: Spontaneous
  Country: US (occurrence: US)
  Receive Date: 20130920
  Receipt Date: 20130920
  Transmission Date: 20140515
  Serious: Yes (Death, Other)
  Sender: FDA-Public Use
  Company Number: US-GILEAD-2013-0083749

PATIENT
  Age: 59 Year
  Sex: Male

DRUGS (2)
  1. SILDENAFIL [Concomitant]
  2. LETAIRIS [Suspect]
     Indication: PRODUCT USED FOR UNKNOWN INDICATION
     Dosage: 5 MG, QD
     Route: 048
     Dates: start: 20101026

REACTIONS (1)
  - Death [Fatal]
